FAERS Safety Report 5276298-7 (Version None)
Quarter: 2007Q1

REPORT INFORMATION
  Report Type: 
  Country: None (occurrence: None)
  Receive Date: 20070326
  Receipt Date: 20070314
  Transmission Date: 20070707
  Serious: Yes (Hospitalization, Other)
  Sender: FDA-Public Use
  Company Number: JP-PFIZER INC-2007015261

PATIENT
  Sex: Male
  Weight: 62 kg

DRUGS (8)
  1. ZITHROMAC [Suspect]
     Indication: PHARYNGITIS
     Route: 048
  2. LOXONIN [Suspect]
     Indication: PHARYNGITIS
     Route: 048
  3. TRANSAMIN [Suspect]
     Indication: PHARYNGITIS
     Route: 048
  4. PREDONINE [Concomitant]
     Route: 048
  5. ASCORBIC ACID [Concomitant]
     Route: 042
  6. GASTER [Concomitant]
     Route: 048
  7. ALFAROL [Concomitant]
     Route: 048
  8. ACTONEL [Concomitant]
     Route: 048

REACTIONS (9)
  - DIARRHOEA [None]
  - FLUID INTAKE REDUCED [None]
  - GENERALISED ERYTHEMA [None]
  - HAEMOLYTIC URAEMIC SYNDROME [None]
  - INFLAMMATION [None]
  - RENAL FAILURE ACUTE [None]
  - SKIN EXFOLIATION [None]
  - VIRAL INFECTION [None]
  - VOMITING [None]
